FAERS Safety Report 14789354 (Version 1)
Quarter: 2018Q2

REPORT INFORMATION
  Report Type: Spontaneous
  Country: BR (occurrence: BR)
  Receive Date: 20180423
  Receipt Date: 20180423
  Transmission Date: 20180711
  Serious: Yes (Other)
  Sender: FDA-Public Use
  Company Number: BR-ACCORD-065948

PATIENT
  Age: 57 Year
  Sex: Male

DRUGS (7)
  1. ABCIXIMAB [Suspect]
     Active Substance: ABCIXIMAB
     Indication: PRODUCT USED FOR UNKNOWN INDICATION
     Dosage: CONTINUOUS INFUSION DURING THE NEXT 12 H
     Route: 022
  2. ACETYLSALICYLIC ACID [Concomitant]
     Active Substance: ASPIRIN
  3. HEPARIN [Concomitant]
     Active Substance: HEPARIN SODIUM
  4. CLOPIDOGREL [Suspect]
     Active Substance: CLOPIDOGREL BISULFATE
     Indication: PRODUCT USED FOR UNKNOWN INDICATION
     Route: 048
  5. CANDESARTAN. [Concomitant]
     Active Substance: CANDESARTAN
  6. EVEROLIMUS. [Concomitant]
     Active Substance: EVEROLIMUS
     Indication: ELECTROCARDIOGRAM ST SEGMENT ELEVATION
  7. ATORVASTATIN [Concomitant]
     Active Substance: ATORVASTATIN

REACTIONS (2)
  - Kounis syndrome [Recovered/Resolved]
  - Vascular stent thrombosis [Recovered/Resolved]
